FAERS Safety Report 22384231 (Version 1)
Quarter: 2023Q2

REPORT INFORMATION
  Report Type: Spontaneous
  Country: FR (occurrence: FR)
  Receive Date: 20230530
  Receipt Date: 20230530
  Transmission Date: 20230721
  Serious: Yes (Hospitalization)
  Sender: FDA-Public Use
  Company Number: None

PATIENT
  Age: 72 Year
  Sex: Female
  Weight: 83.2 kg

DRUGS (9)
  1. XANAX [Suspect]
     Active Substance: ALPRAZOLAM
     Indication: Product used for unknown indication
     Dosage: 0.5 MILLIGRAM, QD (0-0-1 TAB PER DAY, SCORED TAB)
     Route: 048
  2. RISPERDAL [Suspect]
     Active Substance: RISPERIDONE
     Indication: Product used for unknown indication
     Dosage: 8 MILLIGRAM, QD (1-0-1 TAB/DAY)
     Route: 048
     Dates: end: 20221028
  3. OXAZEPAM [Suspect]
     Active Substance: OXAZEPAM
     Indication: Mania
     Dosage: 90 MILLIGRAM, QD (30 MG 3X PER DAY)
     Route: 048
     Dates: start: 20221010
  4. LORMETAZEPAM [Suspect]
     Active Substance: LORMETAZEPAM
     Indication: Schizoaffective disorder
     Dosage: 4 MILLIGRAM, QD (0-0-0-2 TAB/DAY, SCORED TABLET)
     Route: 048
  5. AMANTADINE HYDROCHLORIDE [Concomitant]
     Active Substance: AMANTADINE HYDROCHLORIDE
     Dosage: UNK
     Route: 065
  6. ETIFOXINE [Concomitant]
     Active Substance: ETIFOXINE
     Dosage: UNK
     Route: 065
  7. VALPROMIDE [Concomitant]
     Active Substance: VALPROMIDE
     Dosage: UNK
     Route: 065
  8. DOLIPRANE [Concomitant]
     Active Substance: ACETAMINOPHEN
     Dosage: UNK
     Route: 065
  9. CLOZAPINE [Concomitant]
     Active Substance: CLOZAPINE
     Dosage: UNK
     Route: 065

REACTIONS (2)
  - Altered state of consciousness [Recovering/Resolving]
  - Poisoning [Recovered/Resolved]

NARRATIVE: CASE EVENT DATE: 20221117
